FAERS Safety Report 9751470 (Version 1)
Quarter: 2013Q4

REPORT INFORMATION
  Report Type: Spontaneous
  Country: CA (occurrence: CA)
  Receive Date: 20131212
  Receipt Date: 20131212
  Transmission Date: 20140711
  Serious: Yes (Hospitalization, Other)
  Sender: FDA-Public Use
  Company Number: CHPA2013CA018189

PATIENT
  Age: 58 Year
  Sex: Female

DRUGS (1)
  1. PRIVATE LABEL STRENGTH UNKNOWN [Suspect]
     Indication: SMOKING CESSATION THERAPY
     Dosage: 1 DF, QD
     Route: 062

REACTIONS (5)
  - Haemorrhage [Recovered/Resolved]
  - Aneurysm [Not Recovered/Not Resolved]
  - Epilepsy [Not Recovered/Not Resolved]
  - Convulsion [Recovered/Resolved]
  - Memory impairment [Not Recovered/Not Resolved]
